FAERS Safety Report 5096921-X (Version None)
Quarter: 2006Q3

REPORT INFORMATION
  Report Type: 
  Country: None (occurrence: None)
  Receive Date: 20060831
  Receipt Date: 20060822
  Transmission Date: 20061208
  Serious: Yes (Hospitalization, Other)
  Sender: FDA-Public Use
  Company Number: 2006-07-1595

PATIENT
  Age: 59 Year
  Sex: Female

DRUGS (8)
  1. PEG-INTRON [Suspect]
     Indication: HEPATITIS C
     Dates: start: 20060521
  2. RIBAVIRIN [Suspect]
     Indication: HEPATITIS C
     Dosage: PO
     Route: 048
     Dates: start: 20060521, end: 20060705
  3. NEURONTIN [Concomitant]
  4. NEXIUM [Concomitant]
  5. EFFEXOR [Concomitant]
  6. CYTOMEL [Concomitant]
  7. DEPAKOTE [Concomitant]
  8. PROPRANOLOL HYDROCHLORIDE [Concomitant]

REACTIONS (7)
  - COUGH [None]
  - DECREASED APPETITE [None]
  - DEHYDRATION [None]
  - DIARRHOEA [None]
  - INSOMNIA [None]
  - PNEUMONIA BACTERIAL [None]
  - PNEUMONIA VIRAL [None]
